FAERS Safety Report 14188462 (Version 1)
Quarter: 2017Q4

REPORT INFORMATION
  Report Type: Spontaneous
  Country: US (occurrence: US)
  Receive Date: 20171114
  Receipt Date: 20171114
  Transmission Date: 20180321
  Serious: No
  Sender: FDA-Public Use
  Company Number: US-BAUSCH-BL-2017-001012

PATIENT
  Sex: Female
  Weight: 30.42 kg

DRUGS (1)
  1. APRISO [Suspect]
     Active Substance: MESALAMINE
     Indication: CROHN^S DISEASE
     Route: 048
     Dates: start: 201608

REACTIONS (5)
  - Diarrhoea [Unknown]
  - Product physical issue [Unknown]
  - Muscle spasms [Unknown]
  - Joint swelling [Unknown]
  - Off label use [Unknown]

NARRATIVE: CASE EVENT DATE: 2016
